FAERS Safety Report 25237378 (Version 3)
Quarter: 2025Q2

REPORT INFORMATION
  Report Type: Spontaneous
  Country: JP (occurrence: JP)
  Receive Date: 20250425
  Receipt Date: 20250519
  Transmission Date: 20250717
  Serious: Yes (Hospitalization)
  Sender: AMGEN
  Company Number: JP-KYOWAKIRIN-2025KK007397

PATIENT
  Age: 9 Decade
  Sex: Female

DRUGS (1)
  1. DARBEPOETIN ALFA [Suspect]
     Active Substance: DARBEPOETIN ALFA
     Indication: Nephrogenic anaemia
     Dosage: 60 UG, 1X/2 WEEKS
     Route: 065
     Dates: end: 20250321

REACTIONS (1)
  - Fall [Recovered/Resolved]
